FAERS Safety Report 12515842 (Version 4)
Quarter: 2018Q2

REPORT INFORMATION
  Report Type: Spontaneous
  Country: US (occurrence: US)
  Receive Date: 20160630
  Receipt Date: 20180531
  Transmission Date: 20180711
  Serious: Yes (Hospitalization)
  Sender: FDA-Public Use
  Company Number: US-JNJFOC-20160520495

PATIENT
  Age: 67 Year
  Sex: Female

DRUGS (4)
  1. XARELTO [Suspect]
     Active Substance: RIVAROXABAN
     Indication: LOWER LIMB FRACTURE
     Route: 048
     Dates: start: 20150112, end: 20150115
  2. XARELTO [Suspect]
     Active Substance: RIVAROXABAN
     Indication: THROMBOSIS PROPHYLAXIS
     Route: 048
     Dates: start: 20150112, end: 20150115
  3. MOTRIN [Suspect]
     Active Substance: IBUPROFEN
  4. MOTRIN [Suspect]
     Active Substance: IBUPROFEN
     Indication: PAIN

REACTIONS (1)
  - Upper gastrointestinal haemorrhage [Recovering/Resolving]

NARRATIVE: CASE EVENT DATE: 20150115
